FAERS Safety Report 9685356 (Version 1)
Quarter: 2013Q4

REPORT INFORMATION
  Report Type: Spontaneous
  Country: US (occurrence: US)
  Receive Date: 20131113
  Receipt Date: 20131113
  Transmission Date: 20140711
  Serious: Yes (Other)
  Sender: FDA-Public Use
  Company Number: PHEH2013US023462

PATIENT
  Age: 52 Year
  Sex: Male

DRUGS (7)
  1. EXFORGE [Suspect]
     Dosage: 1 DF, UNK (320 MG VALS, UKN MG AMLO)
  2. EXFORGE [Suspect]
     Dosage: UNK UKN, UNK
  3. EXFORGE [Suspect]
     Dosage: 1 DF, UNK (320 MG VALS, UKN MG AMLO)
  4. BABY ASPIRIN [Concomitant]
     Dosage: 81 MG, UNK
  5. INSULIN [Concomitant]
  6. METFORMIN [Concomitant]
     Dosage: 500 MG, UNK
  7. KEPPRA [Concomitant]
     Dosage: 3 DF (500 MG), BID

REACTIONS (7)
  - Cerebrovascular accident [Unknown]
  - Convulsion [Unknown]
  - Diabetes mellitus [Unknown]
  - Balance disorder [Unknown]
  - Hallucination, visual [Unknown]
  - Limb discomfort [Unknown]
  - Visual impairment [Unknown]
